FAERS Safety Report 7642105-8 (Version None)
Quarter: 2011Q3

REPORT INFORMATION
  Report Type: 
  Country: None (occurrence: None)
  Receive Date: 20110728
  Receipt Date: 20110727
  Transmission Date: 20111222
  Serious: Yes (Hospitalization, Other)
  Sender: FDA-Public Use
  Company Number: CA-ABBOTT-11P-028-0713385-00

PATIENT
  Sex: Male
  Weight: 66.738 kg

DRUGS (1)
  1. HUMIRA [Suspect]
     Indication: CROHN'S DISEASE
     Route: 058
     Dates: start: 20101118, end: 20110707

REACTIONS (4)
  - POSTOPERATIVE WOUND COMPLICATION [None]
  - PAIN [None]
  - RECTAL STENOSIS [None]
  - ABSCESS [None]
